FAERS Safety Report 19147096 (Version 1)
Quarter: 2021Q2

REPORT INFORMATION
  Report Type: Spontaneous
  Country: PL (occurrence: PL)
  Receive Date: 20210416
  Receipt Date: 20210416
  Transmission Date: 20210717
  Serious: Yes (Hospitalization, Other)
  Sender: FDA-Public Use
  Company Number: PL-JNJFOC-20210425374

PATIENT
  Age: 27 Year
  Sex: Female

DRUGS (5)
  1. VENTAVIS [Suspect]
     Active Substance: ILOPROST
     Indication: PRODUCT USED FOR UNKNOWN INDICATION
     Dosage: 5 UG, 6ID
     Route: 055
     Dates: start: 200907
  2. VENTAVIS [Suspect]
     Active Substance: ILOPROST
     Dosage: 5 UG, 8ID
     Route: 055
  3. ACENOCOUMAROL [Concomitant]
     Active Substance: ACENOCOUMAROL
  4. MACITENTAN [Concomitant]
     Active Substance: MACITENTAN
     Dosage: 10 MG, QD, 1?0?0
  5. SILDENAFIL. [Concomitant]
     Active Substance: SILDENAFIL
     Indication: PULMONARY ARTERIAL HYPERTENSION
     Dosage: 20 MG, TID
     Dates: start: 200904

REACTIONS (4)
  - Pulmonary vascular resistance abnormality [Unknown]
  - Brain natriuretic peptide abnormal [Unknown]
  - Pulmonary arterial pressure abnormal [Unknown]
  - Pulmonary hypertension [Unknown]
